FAERS Safety Report 19808848 (Version 1)
Quarter: 2021Q3

REPORT INFORMATION
  Report Type: Spontaneous
  Country: US (occurrence: US)
  Receive Date: 20210909
  Receipt Date: 20210909
  Transmission Date: 20211014
  Serious: Yes (Hospitalization)
  Sender: FDA-Public Use
  Company Number: None

PATIENT
  Age: 24 Year
  Sex: Female
  Weight: 105.3 kg

DRUGS (3)
  1. REGEN?COV [Suspect]
     Active Substance: CASIRIVIMAB\IMDEVIMAB
     Indication: COVID-19
     Dosage: ?          OTHER FREQUENCY:ONCE;?
     Route: 042
     Dates: start: 20210903, end: 20210903
  2. ZOFRAN [Concomitant]
     Active Substance: ONDANSETRON HYDROCHLORIDE
     Dates: start: 20210903, end: 20210906
  3. SODIUM CHLORIDE 09% [Concomitant]
     Dates: start: 20210903, end: 20210906

REACTIONS (4)
  - Vomiting [None]
  - Infusion related reaction [None]
  - Nausea [None]
  - Hypoxia [None]

NARRATIVE: CASE EVENT DATE: 20210903
